FAERS Safety Report 9925552 (Version 1)
Quarter: 2014Q1

REPORT INFORMATION
  Report Type: Spontaneous
  Country: US (occurrence: US)
  Receive Date: 20140226
  Receipt Date: 20140226
  Transmission Date: 20141002
  Serious: Yes (Hospitalization)
  Sender: FDA-Public Use
  Company Number: US-BRISTOL-MYERS SQUIBB COMPANY-20227997

PATIENT
  Age: 69 Year
  Sex: Male
  Weight: 105.5 kg

DRUGS (6)
  1. GLUCOPHAGE TABS [Suspect]
     Indication: DIABETES MELLITUS
     Dosage: 1DF=10 TABS(ROUGHLY)?2000MG?2006-ONG
     Route: 048
     Dates: start: 20131107
  2. LISINOPRIL [Suspect]
     Indication: HYPERTENSION
     Dosage: 1DF=12-15 DOSAGE FORM?2006-ONG
     Route: 048
     Dates: start: 20131107
  3. ASA [Suspect]
     Indication: PROPHYLAXIS
     Dosage: 1DF=SEVERAL DOSAGE FORMS?81MG?2012-ONG
     Route: 048
     Dates: start: 20131107
  4. NAPROXEN [Suspect]
     Dates: start: 20131107, end: 20131107
  5. HYDROCHLOROTHIAZIDE [Concomitant]
     Indication: HYPERTENSION
     Route: 048
     Dates: start: 2006
  6. LORATADINE [Concomitant]
     Indication: FOOD ALLERGY
     Dosage: 1DF=1 TABLET
     Route: 048
     Dates: start: 1985

REACTIONS (5)
  - Suicide attempt [Recovered/Resolved]
  - Major depression [Recovering/Resolving]
  - Overdose [Unknown]
  - Hyponatraemia [Unknown]
  - Renal failure acute [Unknown]
